FAERS Safety Report 7524896-X (Version None)
Quarter: 2011Q2

REPORT INFORMATION
  Report Type: 
  Country: None (occurrence: None)
  Receive Date: 20110526
  Receipt Date: 20110516
  Transmission Date: 20111010
  Serious: Yes (Other)
  Sender: FDA-Public Use
  Company Number: ACO_24378_2011

PATIENT
  Age: 64 Year
  Sex: Male
  Weight: 100.7 kg

DRUGS (6)
  1. AMPYRA [Suspect]
     Indication: GAIT DISTURBANCE
     Dosage: 10 MG, BID, ORAL
     Route: 048
     Dates: start: 20110411, end: 20110516
  2. NEURONTIN [Concomitant]
  3. TEGRETOL [Concomitant]
  4. ASPIRIN [Concomitant]
  5. VITAMIN C /00008001/ (ASCORBIC ACID) [Concomitant]
  6. ERGOCALCIFEROL [Concomitant]

REACTIONS (3)
  - DYSSTASIA [None]
  - INTERVERTEBRAL DISC PROTRUSION [None]
  - BALANCE DISORDER [None]
